FAERS Safety Report 14825731 (Version 2)
Quarter: 2018Q2

REPORT INFORMATION
  Report Type: Report from Study
  Country: JP (occurrence: JP)
  Receive Date: 20180430
  Receipt Date: 20180518
  Transmission Date: 20180711
  Serious: Yes (Death, Hospitalization, Other)
  Sender: FDA-Public Use
  Company Number: JP-009507513-1804JPN002424J

PATIENT
  Age: 52 Year
  Sex: Male
  Weight: 67 kg

DRUGS (19)
  1. RINDERON V [Suspect]
     Active Substance: BETAMETHASONE VALERATE
     Dosage: 2 MG, BID
     Route: 051
     Dates: start: 20180412, end: 20180413
  2. RINDERON V [Suspect]
     Active Substance: BETAMETHASONE VALERATE
     Dosage: 2 MG, BID
     Route: 051
     Dates: start: 20180418, end: 20180418
  3. E KEPPRA [Concomitant]
     Active Substance: LEVETIRACETAM
     Indication: TRANSITIONAL CELL CARCINOMA
     Dosage: 500 MG, BID
     Route: 048
     Dates: start: 20180322, end: 20180419
  4. CLARITHROMYCIN. [Concomitant]
     Active Substance: CLARITHROMYCIN
     Indication: PROPHYLAXIS
     Dosage: 200 MG, QD
     Route: 048
     Dates: start: 20180329, end: 20180419
  5. E KEPPRA [Concomitant]
     Active Substance: LEVETIRACETAM
     Indication: TRANSITIONAL CELL CARCINOMA
     Dosage: 500 MG, BID
     Route: 051
     Dates: start: 20180405, end: 20180419
  6. GLYCEOL [Concomitant]
     Active Substance: GLYCERIN
     Indication: TRANSITIONAL CELL CARCINOMA
     Dosage: 200 ML, TID
     Route: 051
     Dates: start: 20180406, end: 20180418
  7. FYCOMPA [Concomitant]
     Active Substance: PERAMPANEL
     Indication: TRANSITIONAL CELL CARCINOMA
     Dosage: 4 MG, QD
     Route: 048
     Dates: start: 20180327, end: 20180419
  8. RINDERON V [Suspect]
     Active Substance: BETAMETHASONE VALERATE
     Indication: TRANSITIONAL CELL CARCINOMA
     Dosage: 2 MG, 5 TIMES PER DAY
     Route: 051
     Dates: start: 20180406, end: 20180406
  9. GOREISAN [Concomitant]
     Active Substance: HERBALS
     Indication: TRANSITIONAL CELL CARCINOMA
     Dosage: 2.5 G, TID
     Route: 048
     Dates: start: 20180323, end: 20180419
  10. OXYCONTIN [Concomitant]
     Active Substance: OXYCODONE HYDROCHLORIDE
     Indication: TRANSITIONAL CELL CARCINOMA
     Dosage: 5 MG, BID
     Route: 048
     Dates: start: 20180410, end: 20180412
  11. PREDONINE [Suspect]
     Active Substance: PREDNISOLONE
     Indication: TRANSITIONAL CELL CARCINOMA
     Dosage: 5 MG, UNK
     Route: 048
     Dates: start: 20180329, end: 20180405
  12. FAMOTIDINE D [Concomitant]
     Active Substance: FAMOTIDINE
     Indication: PROPHYLAXIS
     Dosage: 20 MG, QD
     Route: 048
     Dates: start: 20180329, end: 20180419
  13. PREDONINE [Suspect]
     Active Substance: PREDNISOLONE
     Dosage: 5 MG, BID
     Route: 048
     Dates: start: 20180406, end: 20180419
  14. RINDERON V [Suspect]
     Active Substance: BETAMETHASONE VALERATE
     Dosage: 2 MG, QID
     Route: 051
     Dates: start: 20180414, end: 20180417
  15. OXINORM [Concomitant]
     Dosage: 2.5 MG, BID
     Route: 048
     Dates: start: 20180412, end: 20180419
  16. PEMBROLIZUMAB. [Suspect]
     Active Substance: PEMBROLIZUMAB
     Indication: TRANSITIONAL CELL CARCINOMA
     Dosage: 200 MG, ONCE
     Route: 041
     Dates: start: 20180410, end: 20180410
  17. RINDERON V [Suspect]
     Active Substance: BETAMETHASONE VALERATE
     Dosage: 2 MG, TID
     Route: 051
     Dates: start: 20180407, end: 20180411
  18. E KEPPRA [Concomitant]
     Active Substance: LEVETIRACETAM
     Dosage: UNK
  19. OXINORM [Concomitant]
     Indication: TRANSITIONAL CELL CARCINOMA
     Dosage: 2.5 MG, QD
     Route: 048
     Dates: start: 20180410, end: 20180411

REACTIONS (2)
  - Duodenal ulcer [Not Recovered/Not Resolved]
  - Brain herniation [Fatal]

NARRATIVE: CASE EVENT DATE: 20180417
